FAERS Safety Report 19061067 (Version 1)
Quarter: 2021Q1

REPORT INFORMATION
  Report Type: Spontaneous
  Country: US (occurrence: US)
  Receive Date: 20210326
  Receipt Date: 20210326
  Transmission Date: 20210420
  Serious: No
  Sender: FDA-Public Use
  Company Number: US-SA-2021SA097155

PATIENT
  Age: 29 Year

DRUGS (1)
  1. MULTAQ [Suspect]
     Active Substance: DRONEDARONE
     Dosage: DRUG STRUCTURE DOSAGE : 400 MG DRUG INTERVAL DOSAGE : ONCE

REACTIONS (1)
  - Vomiting [Unknown]
